FAERS Safety Report 6418281-1 (Version None)
Quarter: 2009Q4

REPORT INFORMATION
  Report Type: 
  Country: None (occurrence: None)
  Receive Date: 20091023
  Receipt Date: 20091013
  Transmission Date: 20100525
  Serious: Yes (Life-Threatening, Other)
  Sender: FDA-Public Use
  Company Number: ADR36492009

PATIENT
  Age: 79 Year
  Sex: Male

DRUGS (6)
  1. SIMVASTATIN [Suspect]
     Indication: BLOOD CHOLESTEROL INCREASED
     Dosage: 20 MG ORAL
     Route: 048
     Dates: start: 20060811, end: 20070114
  2. SIMVASTATIN [Suspect]
     Indication: HYPERTENSION
     Dosage: 20 MG ORAL
     Route: 048
     Dates: start: 20060811, end: 20070114
  3. BECLOMETHASONE DIPROPIONATE [Concomitant]
  4. NIFEDIPINE [Concomitant]
  5. ALBUTEROL [Concomitant]
  6. ZESTORETIC [Concomitant]

REACTIONS (3)
  - ASTHMA [None]
  - CONDITION AGGRAVATED [None]
  - MUSCLE SPASMS [None]
